FAERS Safety Report 10589901 (Version 1)
Quarter: 2014Q4

REPORT INFORMATION
  Report Type: Spontaneous
  Country: US (occurrence: None)
  Receive Date: 20141117
  Receipt Date: 20141117
  Transmission Date: 20150529
  Serious: Yes (Hospitalization)
  Sender: FDA-Public Use
  Company Number: None

PATIENT
  Age: 40 Year
  Sex: Male
  Weight: 39.92 kg

DRUGS (1)
  1. MORPHINE [Suspect]
     Active Substance: MORPHINE
     Indication: MIGRAINE
     Dates: start: 20141113, end: 20141113

REACTIONS (4)
  - Vomiting [None]
  - Nausea [None]
  - Incorrect dose administered [None]
  - Malaise [None]

NARRATIVE: CASE EVENT DATE: 20141113
